FAERS Safety Report 9255124 (Version 1)
Quarter: 2013Q2

REPORT INFORMATION
  Report Type: Spontaneous
  Country: US (occurrence: US)
  Receive Date: 20130425
  Receipt Date: 20130425
  Transmission Date: 20140414
  Serious: Yes (Hospitalization)
  Sender: FDA-Public Use
  Company Number: US-ELI_LILLY_AND_COMPANY-US201304004370

PATIENT
  Age: 38 Year
  Sex: Female
  Weight: 93.42 kg

DRUGS (3)
  1. CYMBALTA [Suspect]
     Indication: DEPRESSION
     Dosage: 50 MG, BID
  2. LYRICA [Concomitant]
     Indication: TRIGEMINAL NEURALGIA
     Dosage: 300 MG, BID
     Dates: start: 2009
  3. SUBUTEX [Concomitant]
     Indication: TRIGEMINAL NEURALGIA
     Dosage: 8 MG, TID

REACTIONS (3)
  - Fall [Unknown]
  - Limb injury [Unknown]
  - Pain [Unknown]
